FAERS Safety Report 22111362 (Version 1)
Quarter: 2023Q1

REPORT INFORMATION
  Report Type: Spontaneous
  Country: IN (occurrence: US)
  Receive Date: 20230317
  Receipt Date: 20230317
  Transmission Date: 20230417
  Serious: No
  Sender: FDA-Public Use
  Company Number: IN-009507513-2303USA000696

PATIENT
  Sex: Male

DRUGS (5)
  1. TRUSOPT [Suspect]
     Active Substance: DORZOLAMIDE HYDROCHLORIDE
     Indication: Intraocular pressure increased
     Dosage: UNK, TWO TIMES PER DAY, IN THE RIGHT EYE
     Route: 047
  2. TRUSOPT [Suspect]
     Active Substance: DORZOLAMIDE HYDROCHLORIDE
     Dosage: UNK, TID, IN THE LEFT EYE
     Route: 047
  3. TIMOLOL [Suspect]
     Active Substance: TIMOLOL
     Indication: Intraocular pressure increased
     Dosage: UNK, TWO TIMES PER DAY
     Route: 047
  4. TRAVOPROST [Suspect]
     Active Substance: TRAVOPROST
     Indication: Intraocular pressure increased
     Dosage: UNK, BEDTIME
  5. ACETAZOLAMIDE [Suspect]
     Active Substance: ACETAZOLAMIDE
     Indication: Intraocular pressure increased
     Dosage: 125 MILLIGRAM, THREE TIMES PER DAY

REACTIONS (1)
  - Drug ineffective [Unknown]
